FAERS Safety Report 15287176 (Version 2)
Quarter: 2018Q3

REPORT INFORMATION
  Report Type: Spontaneous
  Country: RU (occurrence: RU)
  Receive Date: 20180817
  Receipt Date: 20180920
  Transmission Date: 20181010
  Serious: Yes (Other)
  Sender: FDA-Public Use
  Company Number: RU-REGENERON PHARMACEUTICALS, INC.-2018-33717

PATIENT

DRUGS (1)
  1. EYLEA [Suspect]
     Active Substance: AFLIBERCEPT
     Indication: NEOVASCULAR AGE-RELATED MACULAR DEGENERATION
     Dosage: TOTAL ONE EYLEA DOSE PRIOR THE EVENT ON UNSPECIFIED DATE

REACTIONS (6)
  - Anterior segment ischaemia [Recovered/Resolved]
  - Eyelid oedema [Recovered/Resolved]
  - Abnormal sensation in eye [Recovered/Resolved]
  - Conjunctival oedema [Recovered/Resolved]
  - Corneal lesion [Recovered/Resolved]
  - Hypersensitivity [Recovered/Resolved]
